FAERS Safety Report 11375061 (Version 1)
Quarter: 2015Q3

REPORT INFORMATION
  Report Type: Spontaneous
  Country: IT (occurrence: IT)
  Receive Date: 20150813
  Receipt Date: 20150813
  Transmission Date: 20151125
  Serious: Yes (Other)
  Sender: FDA-Public Use
  Company Number: IT-TEVA-584501ACC

PATIENT
  Age: 66 Year
  Sex: Male

DRUGS (6)
  1. SOLDESAM - 8 MG/2 ML SOLUZIONE INIETTABILE [Concomitant]
     Active Substance: DEXAMETHASONE SODIUM PHOSPHATE
     Indication: PROPHYLAXIS OF NAUSEA AND VOMITING
     Dosage: 8 MG
     Route: 042
     Dates: start: 20150618, end: 20150618
  2. ETOPOSIDE TEVA - FLACONE 50 ML 20MG/ML - TEVA PHARMA B.V. [Suspect]
     Active Substance: ETOPOSIDE
     Indication: CHEMOTHERAPY
     Dosage: 250 MG CYCLICAL
     Route: 042
     Dates: start: 20150523, end: 20150618
  3. ZOFRAN - 8 MG/4 ML SOLUZIONE INIETTABILE [Concomitant]
     Indication: PROPHYLAXIS OF NAUSEA AND VOMITING
     Dosage: 8 MG
     Route: 042
     Dates: start: 20150618, end: 20150618
  4. ANTRA - 40 MG POLVERE PER SOLUZIONE PER INFUSIONE [Concomitant]
     Indication: PROPHYLAXIS OF NAUSEA AND VOMITING
     Dosage: 40 MG,POWDER FOR SOLUTION FOR INFUSION
     Route: 042
     Dates: start: 20150618, end: 20150618
  5. PLASIL - 10 MG/2 ML SOLUZIONE INIETTABILE [Concomitant]
     Indication: PROPHYLAXIS OF NAUSEA AND VOMITING
     Dosage: 20 MG
     Route: 042
     Dates: start: 20150618, end: 20150618
  6. CARBOPLATINO TEVA - FLACONE IV 45 ML 10 MG/ML [Concomitant]
     Indication: CHEMOTHERAPY
     Dosage: 500 MG
     Route: 042
     Dates: start: 20150523, end: 20150618

REACTIONS (3)
  - Erythema [Recovered/Resolved]
  - Dyspnoea [Recovered/Resolved]
  - Syncope [Recovered/Resolved]

NARRATIVE: CASE EVENT DATE: 20150618
